FAERS Safety Report 16154693 (Version 1)
Quarter: 2019Q2

REPORT INFORMATION
  Report Type: Report from Study
  Country: JP (occurrence: JP)
  Receive Date: 20190403
  Receipt Date: 20190403
  Transmission Date: 20190711
  Serious: Yes (Death, Hospitalization)
  Sender: FDA-Public Use
  Company Number: JP-BAYER-2019-061685

PATIENT
  Age: 66 Year
  Sex: Female

DRUGS (3)
  1. CEFOTIAM [Suspect]
     Active Substance: CEFOTIAM
     Dosage: UNK
  2. NAPROXEN. [Suspect]
     Active Substance: NAPROXEN
     Dosage: UNK
  3. MELOXICAM. [Suspect]
     Active Substance: MELOXICAM
     Dosage: UNK

REACTIONS (2)
  - Sepsis [Fatal]
  - Toxic epidermal necrolysis [Fatal]
